FAERS Safety Report 5764067-0 (Version None)
Quarter: 2008Q2

REPORT INFORMATION
  Report Type: 
  Country: None (occurrence: None)
  Receive Date: 20080606
  Receipt Date: 20080606
  Transmission Date: 20081010
  Serious: Yes (Other)
  Sender: FDA-Public Use
  Company Number: None

PATIENT
  Sex: Female
  Weight: 57.6068 kg

DRUGS (4)
  1. KLONOPIN [Suspect]
     Indication: PAIN
     Dosage: 0.5 MG ONE QID PO
     Route: 048
  2. METHADONE HCL [Concomitant]
  3. SYNTHROID [Concomitant]
  4. HYDROXYZINE [Concomitant]

REACTIONS (3)
  - ASTHENIA [None]
  - BALANCE DISORDER [None]
  - PHARMACEUTICAL PRODUCT COMPLAINT [None]
